FAERS Safety Report 7537023-X (Version None)
Quarter: 2011Q2

REPORT INFORMATION
  Report Type: 
  Country: None (occurrence: None)
  Receive Date: 20110609
  Receipt Date: 20110526
  Transmission Date: 20111010
  Serious: Yes (Other)
  Sender: FDA-Public Use
  Company Number: PHHY2011US45588

PATIENT
  Age: 67 Year
  Sex: Female

DRUGS (1)
  1. IMATINIB MESYLATE [Suspect]
     Indication: METASTATIC MALIGNANT MELANOMA

REACTIONS (4)
  - NEOPLASM MALIGNANT [None]
  - RASH MACULO-PAPULAR [None]
  - KERATOACANTHOMA [None]
  - METASTATIC MALIGNANT MELANOMA [None]
